FAERS Safety Report 13492565 (Version 1)
Quarter: 2017Q2

REPORT INFORMATION
  Report Type: Spontaneous
  Country: ES (occurrence: ES)
  Receive Date: 20170427
  Receipt Date: 20170427
  Transmission Date: 20170830
  Serious: Yes (Other)
  Sender: FDA-Public Use
  Company Number: ES-ROCHE-1925517

PATIENT
  Age: 30 Year
  Sex: Male

DRUGS (2)
  1. LUCENTIS [Suspect]
     Active Substance: RANIBIZUMAB
     Indication: HAEMANGIOBLASTOMA
     Dosage: UNK
     Route: 031
  2. PROPRANOLOL [Concomitant]
     Active Substance: PROPRANOLOL HYDROCHLORIDE
     Route: 048

REACTIONS (4)
  - Subretinal fluid [Recovered/Resolved]
  - Product use in unapproved indication [Unknown]
  - Visual acuity reduced [Recovered/Resolved]
  - Macular detachment [Unknown]
